FAERS Safety Report 24368156 (Version 3)
Quarter: 2025Q3

REPORT INFORMATION
  Report Type: Spontaneous
  Country: JP (occurrence: JP)
  Receive Date: 20240926
  Receipt Date: 20250919
  Transmission Date: 20251021
  Serious: Yes (Death, Life-Threatening, Other)
  Sender: JAZZ
  Company Number: JP-JAZZ PHARMACEUTICALS-2024-JP-016172

PATIENT
  Age: 82 Year
  Sex: Male
  Weight: 77 kg

DRUGS (52)
  1. VYXEOS [Suspect]
     Active Substance: CYTARABINE\DAUNORUBICIN
     Indication: Acute myeloid leukaemia
     Dates: start: 20240902, end: 20240902
  2. VYXEOS [Suspect]
     Active Substance: CYTARABINE\DAUNORUBICIN
     Dates: start: 20240904, end: 20240904
  3. VYXEOS [Suspect]
     Active Substance: CYTARABINE\DAUNORUBICIN
     Dates: start: 20240906, end: 20240906
  4. CYTARABINE [Suspect]
     Active Substance: CYTARABINE
     Indication: Acute myeloid leukaemia
  5. VIDAZA [Suspect]
     Active Substance: AZACITIDINE
     Indication: Acute myeloid leukaemia
  6. LEVOFLOXACIN [Concomitant]
     Active Substance: LEVOFLOXACIN
     Indication: Febrile neutropenia
     Dates: start: 20240906, end: 20240910
  7. FULCALIQ [Concomitant]
     Active Substance: AMINO ACIDS\CARBOHYDRATES\ELECTROLYTES NOS\VITAMINS
     Indication: Dehydration
     Dates: start: 20240907, end: 20240910
  8. IRRADIATED PLATELET CONCENTRATE-LEUKOCYTES REDUCED [Concomitant]
     Indication: Product used for unknown indication
     Dates: start: 20240902, end: 20240902
  9. IRRADIATED PLATELET CONCENTRATE-LEUKOCYTES REDUCED [Concomitant]
     Dates: start: 20240905, end: 20240905
  10. IRRADIATED PLATELET CONCENTRATE-LEUKOCYTES REDUCED [Concomitant]
     Dates: start: 20240908, end: 20240908
  11. DUTASTERIDE [Concomitant]
     Active Substance: DUTASTERIDE
     Indication: Product used for unknown indication
  12. DUTASTERIDE [Concomitant]
     Active Substance: DUTASTERIDE
     Dates: start: 20240828, end: 20240905
  13. DUTASTERIDE [Concomitant]
     Active Substance: DUTASTERIDE
  14. BISOPROLOL FUMARATE [Concomitant]
     Active Substance: BISOPROLOL FUMARATE
     Indication: Product used for unknown indication
     Dates: start: 20240828, end: 20240905
  15. ENTRESTO [Concomitant]
     Active Substance: SACUBITRIL\VALSARTAN
     Indication: Product used for unknown indication
     Dates: start: 20240828, end: 20240905
  16. ELDECALCITOL [Concomitant]
     Active Substance: ELDECALCITOL
     Indication: Product used for unknown indication
     Dates: start: 20240828, end: 20240905
  17. FEBUXOSTAT [Concomitant]
     Active Substance: FEBUXOSTAT
     Indication: Product used for unknown indication
     Dates: start: 20240828, end: 20240905
  18. VONOPRAZAN FUMARATE [Concomitant]
     Active Substance: VONOPRAZAN FUMARATE
     Indication: Product used for unknown indication
     Dates: start: 20240828, end: 20240905
  19. BIO THREE OD [Concomitant]
     Indication: Product used for unknown indication
  20. BIO THREE OD [Concomitant]
     Dates: start: 20240828, end: 20240905
  21. MOSAPRIDE CITRATE DIHYDRATE [Concomitant]
     Active Substance: MOSAPRIDE CITRATE DIHYDRATE
     Indication: Product used for unknown indication
  22. MOSAPRIDE CITRATE DIHYDRATE [Concomitant]
     Active Substance: MOSAPRIDE CITRATE DIHYDRATE
     Dates: start: 20240828, end: 20240905
  23. AMITIZA [Concomitant]
     Active Substance: LUBIPROSTONE
     Indication: Product used for unknown indication
  24. AMITIZA [Concomitant]
     Active Substance: LUBIPROSTONE
     Dates: start: 20240828, end: 20240905
  25. EMEND [Concomitant]
     Active Substance: APREPITANT
     Indication: Product used for unknown indication
     Dates: start: 20240902, end: 20240902
  26. EMEND [Concomitant]
     Active Substance: APREPITANT
     Dates: start: 20240903, end: 20240904
  27. ACETAMINOPHEN [Concomitant]
     Active Substance: ACETAMINOPHEN
     Indication: Pyrexia
     Dates: start: 20240831, end: 20240902
  28. ACETAMINOPHEN [Concomitant]
     Active Substance: ACETAMINOPHEN
     Dates: start: 20240903, end: 20240903
  29. LEVOFLOXACIN [Concomitant]
     Active Substance: LEVOFLOXACIN
     Indication: Product used for unknown indication
     Dates: start: 20240903, end: 20240905
  30. HEPARINOID [Concomitant]
     Indication: Product used for unknown indication
     Dates: start: 20240906, end: 20240906
  31. SODIUM CHLORIDE [Concomitant]
     Active Substance: SODIUM CHLORIDE
     Indication: Product used for unknown indication
     Dates: start: 20240828, end: 20240901
  32. SODIUM CHLORIDE [Concomitant]
     Active Substance: SODIUM CHLORIDE
     Dates: start: 20240902, end: 20240902
  33. SODIUM CHLORIDE [Concomitant]
     Active Substance: SODIUM CHLORIDE
     Dates: start: 20240904, end: 20240904
  34. SODIUM CHLORIDE [Concomitant]
     Active Substance: SODIUM CHLORIDE
     Dates: start: 20240906, end: 20240906
  35. SODIUM CHLORIDE [Concomitant]
     Active Substance: SODIUM CHLORIDE
  36. SODIUM CHLORIDE [Concomitant]
     Active Substance: SODIUM CHLORIDE
     Dates: start: 20240828, end: 20240901
  37. SODIUM CHLORIDE [Concomitant]
     Active Substance: SODIUM CHLORIDE
     Dates: start: 20240902, end: 20240902
  38. SODIUM CHLORIDE [Concomitant]
     Active Substance: SODIUM CHLORIDE
     Dates: start: 20240903, end: 20240903
  39. SODIUM CHLORIDE [Concomitant]
     Active Substance: SODIUM CHLORIDE
     Dates: start: 20240904, end: 20240904
  40. SODIUM CHLORIDE [Concomitant]
     Active Substance: SODIUM CHLORIDE
     Dates: start: 20240905, end: 20240905
  41. SODIUM CHLORIDE [Concomitant]
     Active Substance: SODIUM CHLORIDE
     Dates: start: 20240906, end: 20240906
  42. SODIUM CHLORIDE [Concomitant]
     Active Substance: SODIUM CHLORIDE
  43. SODIUM CHLORIDE [Concomitant]
     Active Substance: SODIUM CHLORIDE
     Dates: start: 20240902, end: 20240903
  44. SODIUM CHLORIDE [Concomitant]
     Active Substance: SODIUM CHLORIDE
     Dates: start: 20240904, end: 20240904
  45. SODIUM CHLORIDE [Concomitant]
     Active Substance: SODIUM CHLORIDE
     Dates: start: 20240905, end: 20240905
  46. SODIUM CHLORIDE [Concomitant]
     Active Substance: SODIUM CHLORIDE
     Dates: start: 20240906, end: 20240906
  47. DISTILLED WATER [WATER FOR INJECTION] [Concomitant]
     Indication: Product used for unknown indication
     Dates: start: 20240902, end: 20240902
  48. DISTILLED WATER [WATER FOR INJECTION] [Concomitant]
     Dates: start: 20240904, end: 20240904
  49. DISTILLED WATER [WATER FOR INJECTION] [Concomitant]
     Dates: start: 20240906, end: 20240906
  50. SOLACET D [Concomitant]
     Indication: Product used for unknown indication
     Dates: start: 20240831, end: 20240901
  51. DAUNORUBICIN [Concomitant]
     Active Substance: DAUNORUBICIN
     Indication: Acute myeloid leukaemia
  52. VENCLEXTA [Concomitant]
     Active Substance: VENETOCLAX
     Indication: Acute myeloid leukaemia

REACTIONS (16)
  - Disseminated intravascular coagulation [Fatal]
  - Cerebellar embolism [Fatal]
  - Acute myeloid leukaemia recurrent [Fatal]
  - Cerebral artery embolism [Fatal]
  - Acute myeloid leukaemia [Fatal]
  - Disseminated intravascular coagulation [Not Recovered/Not Resolved]
  - White blood cell count decreased [Unknown]
  - Gastric ulcer [Unknown]
  - Back pain [Unknown]
  - Blood urea increased [Unknown]
  - Glomerular filtration rate increased [Unknown]
  - Aspartate aminotransferase increased [Unknown]
  - Alanine aminotransferase increased [Unknown]
  - Blood phosphorus increased [Unknown]
  - Blood uric acid increased [Unknown]
  - Vomiting [Unknown]

NARRATIVE: CASE EVENT DATE: 20240901
